FAERS Safety Report 14623459 (Version 4)
Quarter: 2021Q1

REPORT INFORMATION
  Report Type: Other
  Country: US (occurrence: US)
  Receive Date: 20180312
  Receipt Date: 20210323
  Transmission Date: 20210419
  Serious: Yes (Hospitalization, Other)
  Sender: FDA-Public Use
  Company Number: US-ROCHE-2081437

PATIENT
  Age: 75 Year
  Sex: Female
  Weight: 76.27 kg

DRUGS (19)
  1. ATENOLOL. [Concomitant]
     Active Substance: ATENOLOL
  2. ATORVASTATIN [Concomitant]
     Active Substance: ATORVASTATIN
  3. METFORMIN [Concomitant]
     Active Substance: METFORMIN HYDROCHLORIDE
  4. POTASSIUM [Concomitant]
     Active Substance: POTASSIUM
  5. TRAMADOL. [Concomitant]
     Active Substance: TRAMADOL
  6. PREDNISONE. [Concomitant]
     Active Substance: PREDNISONE
     Dosage: TAPERING OFF ;ONGOING: YES
     Dates: start: 20171001
  7. HYDROCHLOROTIAZID [Concomitant]
  8. XANAX [Concomitant]
     Active Substance: ALPRAZOLAM
  9. ACTEMRA [Suspect]
     Active Substance: TOCILIZUMAB
     Route: 058
     Dates: start: 201711, end: 2020
  10. CALCIUM + VITAMIN D3 [Concomitant]
     Active Substance: CALCIUM CARBONATE\CHOLECALCIFEROL
  11. CYMBALTA [Concomitant]
     Active Substance: DULOXETINE HYDROCHLORIDE
  12. DICLOFENAC [Concomitant]
     Active Substance: DICLOFENAC
  13. RIZATRIPTAN. [Concomitant]
     Active Substance: RIZATRIPTAN
  14. ACTEMRA [Suspect]
     Active Substance: TOCILIZUMAB
  15. ACTEMRA [Suspect]
     Active Substance: TOCILIZUMAB
     Indication: GIANT CELL ARTERITIS
     Route: 058
     Dates: start: 20180127
  16. ACTEMRA [Suspect]
     Active Substance: TOCILIZUMAB
  17. ELIQUIS [Concomitant]
     Active Substance: APIXABAN
  18. ACTEMRA [Suspect]
     Active Substance: TOCILIZUMAB
     Indication: POLYMYALGIA RHEUMATICA
     Route: 058
     Dates: start: 20171213
  19. ACTEMRA [Suspect]
     Active Substance: TOCILIZUMAB

REACTIONS (8)
  - Cellulitis [Unknown]
  - Abscess [Unknown]
  - Pain [Unknown]
  - Deep vein thrombosis [Unknown]
  - Infection [Unknown]
  - Swelling [Unknown]
  - Pulmonary embolism [Unknown]
  - Erythema [Unknown]

NARRATIVE: CASE EVENT DATE: 20171214
